FAERS Safety Report 4934780-3 (Version None)
Quarter: 2006Q1

REPORT INFORMATION
  Report Type: 
  Country: None (occurrence: None)
  Receive Date: 20060307
  Receipt Date: 20051111
  Transmission Date: 20060701
  Serious: Yes (Hospitalization)
  Sender: FDA-Public Use
  Company Number: US-MERCK-0511USA02060

PATIENT
  Age: 76 Year
  Sex: Male
  Weight: 81 kg

DRUGS (13)
  1. VIOXX [Suspect]
     Indication: ARTHRITIS
     Route: 048
     Dates: start: 20000101, end: 20040101
  2. IBUPROFEN [Concomitant]
     Route: 065
     Dates: start: 19990101, end: 20000101
  3. LEVOXYL [Concomitant]
     Indication: HYPOTHYROIDISM
     Route: 065
  4. VIOXX [Suspect]
     Indication: ARTHRALGIA
     Route: 048
     Dates: start: 20000101, end: 20040101
  5. TRIAMTERENE [Concomitant]
     Route: 065
  6. HUMULIN [Concomitant]
     Indication: DIABETES MELLITUS
     Route: 065
  7. PRINIVIL [Concomitant]
     Indication: HYPERTENSION
     Route: 065
     Dates: start: 20020101
  8. ZESTRIL [Concomitant]
     Indication: HYPERTENSION
     Route: 065
     Dates: start: 20020101, end: 20030101
  9. SYNTHROID [Concomitant]
     Indication: HYPOTHYROIDISM
     Route: 065
  10. METOPROLOL [Concomitant]
     Indication: HYPERTENSION
     Route: 065
  11. NORVASC [Concomitant]
     Indication: HYPERTENSION
     Route: 065
     Dates: start: 20030101
  12. TYLENOL (CAPLET) [Concomitant]
     Route: 065
     Dates: start: 19990101
  13. DIAZIDE [Concomitant]
     Indication: HYPERTENSION
     Route: 065
     Dates: start: 20000101

REACTIONS (11)
  - ARTHRALGIA [None]
  - BLOOD TRIGLYCERIDES INCREASED [None]
  - BRADYCARDIA [None]
  - CEREBROVASCULAR ACCIDENT [None]
  - CONVULSION [None]
  - DYSKINESIA [None]
  - HYPERLIPIDAEMIA [None]
  - INCONTINENCE [None]
  - PERIPHERAL ARTERY ANEURYSM [None]
  - PNEUMONIA [None]
  - UNRESPONSIVE TO VERBAL STIMULI [None]
